FAERS Safety Report 5446552-4 (Version None)
Quarter: 2007Q3

REPORT INFORMATION
  Report Type: 
  Country: None (occurrence: None)
  Receive Date: 20070907
  Receipt Date: 20070816
  Transmission Date: 20080115
  Serious: No
  Sender: FDA-Public Use
  Company Number: DK-PFIZER INC-2007023411

PATIENT
  Sex: Male

DRUGS (1)
  1. VARENICLINE TABLETS [Suspect]
     Indication: SMOKING CESSATION THERAPY
     Route: 048
     Dates: start: 20070115, end: 20070207

REACTIONS (2)
  - ALANINE AMINOTRANSFERASE INCREASED [None]
  - HEADACHE [None]
